FAERS Safety Report 12790058 (Version 20)
Quarter: 2023Q1

REPORT INFORMATION
  Report Type: Report from Study
  Country: CA (occurrence: CA)
  Receive Date: 20160928
  Receipt Date: 20230131
  Transmission Date: 20230417
  Serious: Yes (Other)
  Sender: FDA-Public Use
  Company Number: PHHY2016CA081553

PATIENT
  Age: 68 Year
  Sex: Male

DRUGS (4)
  1. SANDOSTATIN LAR DEPOT [Suspect]
     Active Substance: OCTREOTIDE ACETATE
     Indication: Neuroendocrine tumour
     Dosage: 30 MG, Q4W (EVERY 4 WEEKS)
     Route: 030
     Dates: start: 20150710
  2. SANDOSTATIN LAR DEPOT [Suspect]
     Active Substance: OCTREOTIDE ACETATE
     Dosage: 30 MG, Q4W
     Route: 030
     Dates: start: 20211203
  3. SANDOSTATIN LAR DEPOT [Suspect]
     Active Substance: OCTREOTIDE ACETATE
  4. ATENOLOL [Concomitant]
     Active Substance: ATENOLOL
     Indication: Product used for unknown indication
     Dosage: UNK
     Route: 048

REACTIONS (16)
  - Urethral obstruction [Unknown]
  - Urinary retention [Unknown]
  - Blood pressure increased [Unknown]
  - Abdominal pain [Unknown]
  - Wrist fracture [Unknown]
  - Fall [Unknown]
  - Cardiac flutter [Unknown]
  - Blood urine present [Unknown]
  - Bowel movement irregularity [Unknown]
  - White coat hypertension [Unknown]
  - Blood pressure systolic increased [Unknown]
  - Anxiety [Unknown]
  - Faeces discoloured [Unknown]
  - Heart rate irregular [Unknown]
  - Abdominal discomfort [Unknown]
  - Heart rate increased [Unknown]

NARRATIVE: CASE EVENT DATE: 20160101
